FAERS Safety Report 9168954 (Version 1)
Quarter: 2013Q1

REPORT INFORMATION
  Report Type: Spontaneous
  Country: JP (occurrence: JP)
  Receive Date: 20130318
  Receipt Date: 20130318
  Transmission Date: 20140127
  Serious: Yes (Death, Other)
  Sender: FDA-Public Use
  Company Number: JP-OTSUKA-US-2013-10442

PATIENT
  Age: 42 Year
  Sex: Male

DRUGS (1)
  1. BUSULFEX [Suspect]
     Indication: BONE MARROW CONDITIONING REGIMEN
     Dosage: 3.2 UNK, UNK
     Route: 065

REACTIONS (2)
  - Venoocclusive liver disease [Recovering/Resolving]
  - Disease progression [Fatal]
